FAERS Safety Report 18583762 (Version 2)
Quarter: 2020Q4

REPORT INFORMATION
  Report Type: Report from Study
  Country: DE (occurrence: DE)
  Receive Date: 20201207
  Receipt Date: 20201216
  Transmission Date: 20210114
  Serious: Yes (Other)
  Sender: FDA-Public Use
  Company Number: DE-CELLTRION INC.-2020DE033107

PATIENT

DRUGS (2)
  1. TRUXIMA [Suspect]
     Active Substance: RITUXIMAB-ABBS
     Indication: MARGINAL ZONE LYMPHOMA
     Dosage: 375 MG/SQUARE METER ON DAY 1 OF EVERY CYCLE
     Route: 042
     Dates: start: 20200821, end: 20200821
  2. COPANLISIB. [Suspect]
     Active Substance: COPANLISIB
     Indication: MARGINAL ZONE LYMPHOMA
     Dosage: 60 MG ON DAYS 1, 8, AND 15 OF EVERY CYCLE
     Route: 042
     Dates: start: 20200821, end: 20200821

REACTIONS (2)
  - Hyperglycaemia [Recovered/Resolved]
  - Off label use [Unknown]

NARRATIVE: CASE EVENT DATE: 20200821
